FAERS Safety Report 6371675-5 (Version None)
Quarter: 2009Q3

REPORT INFORMATION
  Report Type: 
  Country: None (occurrence: None)
  Receive Date: 20090923
  Receipt Date: 20090316
  Transmission Date: 20100115
  Serious: No
  Sender: FDA-Public Use
  Company Number: US-ASTRAZENECA-2008UW11794

PATIENT
  Age: 53 Year
  Sex: Female

DRUGS (4)
  1. SEROQUEL [Suspect]
     Indication: BIPOLAR DISORDER
     Route: 048
     Dates: start: 20060601, end: 20080609
  2. SEROQUEL [Suspect]
     Route: 048
     Dates: start: 20081026
  3. CYMBALTA [Concomitant]
  4. PAIN MEDICATION [Concomitant]

REACTIONS (13)
  - CHILLS [None]
  - COLD SWEAT [None]
  - DIARRHOEA [None]
  - DYSPEPSIA [None]
  - ENURESIS [None]
  - FATIGUE [None]
  - HYPERHIDROSIS [None]
  - INFLUENZA LIKE ILLNESS [None]
  - INSOMNIA [None]
  - MIGRAINE [None]
  - NAUSEA [None]
  - VOMITING [None]
  - WITHDRAWAL SYNDROME [None]
